FAERS Safety Report 5060272-X (Version None)
Quarter: 2006Q3

REPORT INFORMATION
  Report Type: 
  Country: None (occurrence: None)
  Receive Date: 20060720
  Receipt Date: 20060713
  Transmission Date: 20061208
  Serious: Yes (Hospitalization)
  Sender: FDA-Public Use
  Company Number: 2006-02910

PATIENT
  Age: 15 Year
  Sex: Female

DRUGS (1)
  1. ERYTHROMYCIN [Suspect]
     Indication: OVERDOSE
     Dosage: 5.3 G, SINGLE, ORAL
     Route: 048

REACTIONS (2)
  - OVERDOSE [None]
  - PANCREATITIS ACUTE [None]
